FAERS Safety Report 8299138-0 (Version None)
Quarter: 2012Q2

REPORT INFORMATION
  Report Type: 
  Country: None (occurrence: None)
  Receive Date: 20120419
  Receipt Date: 20120413
  Transmission Date: 20120825
  Serious: Yes (Hospitalization)
  Sender: FDA-Public Use
  Company Number: US-ABBOTT-12P-163-0925962-00

PATIENT
  Age: 36 Year
  Sex: Female

DRUGS (8)
  1. ZANAFLEX [Concomitant]
     Indication: MUSCLE SPASMS
  2. METHOTREXATE [Concomitant]
     Indication: PRODUCT USED FOR UNKNOWN INDICATION
  3. ALBUTEROL [Concomitant]
     Indication: PRODUCT USED FOR UNKNOWN INDICATION
  4. FOLIC ACID [Concomitant]
     Indication: PRODUCT USED FOR UNKNOWN INDICATION
  5. SYMBICORT [Concomitant]
     Indication: PRODUCT USED FOR UNKNOWN INDICATION
     Dosage: QAM AND QHS
  6. HUMIRA [Suspect]
     Indication: RHEUMATOID ARTHRITIS
     Route: 058
     Dates: start: 20120327
  7. PREDNISONE TAB [Concomitant]
     Indication: PAIN
     Dosage: 5-10MG (DOSE DETERMINED BY PAIN LEVEL)
  8. MAXALT SL [Concomitant]
     Indication: MIGRAINE

REACTIONS (6)
  - EYE PAIN [None]
  - FIBROMYALGIA [None]
  - SINUSITIS [None]
  - PHOTOPHOBIA [None]
  - RHEUMATOID ARTHRITIS [None]
  - VISION BLURRED [None]
